FAERS Safety Report 6445208-9 (Version None)
Quarter: 2009Q4

REPORT INFORMATION
  Report Type: 
  Country: None (occurrence: None)
  Receive Date: 20091118
  Receipt Date: 20090922
  Transmission Date: 20100525
  Serious: No
  Sender: FDA-Public Use
  Company Number: US-BRISTOL-MYERS SQUIBB COMPANY-14763676

PATIENT
  Age: 32 Year
  Sex: Female

DRUGS (2)
  1. GLUCOPHAGE XR [Suspect]
     Indication: POLYCYSTIC OVARIES
     Route: 048
     Dates: start: 20040501
  2. GLUCOPHAGE XR [Suspect]
     Indication: INSULIN RESISTANCE
     Route: 048
     Dates: start: 20040501

REACTIONS (3)
  - DYSGEUSIA [None]
  - FEELING ABNORMAL [None]
  - HYPOAESTHESIA FACIAL [None]
